FAERS Safety Report 20609725 (Version 1)
Quarter: 2022Q1

REPORT INFORMATION
  Report Type: Spontaneous
  Country: US (occurrence: US)
  Receive Date: 20220318
  Receipt Date: 20220318
  Transmission Date: 20220423
  Serious: No
  Sender: FDA-Public Use
  Company Number: US-Hikma Pharmaceuticals USA Inc.-US-H14001-22-00206

PATIENT
  Age: 92 Year
  Sex: Male

DRUGS (2)
  1. DICYCLOMINE [Suspect]
     Active Substance: DICYCLOMINE HYDROCHLORIDE
     Indication: Abdominal pain upper
     Dosage: UNKNOWN
     Route: 048
  2. AZELASTINE [Suspect]
     Active Substance: AZELASTINE
     Indication: Nasal septum deviation
     Dosage: ONE SPRAY, TWO-THREE SPRAYS
     Route: 045

REACTIONS (2)
  - Enuresis [Unknown]
  - Product use in unapproved indication [Unknown]
